FAERS Safety Report 9827244 (Version 1)
Quarter: 2014Q1

REPORT INFORMATION
  Report Type: Spontaneous
  Country: US (occurrence: US)
  Receive Date: 20140117
  Receipt Date: 20140117
  Transmission Date: 20141002
  Serious: No
  Sender: FDA-Public Use
  Company Number: US-GLAXOSMITHKLINE-A1048715A

PATIENT
  Age: 54 Year
  Sex: Female

DRUGS (4)
  1. PROMACTA [Suspect]
     Indication: IMMUNE THROMBOCYTOPENIC PURPURA
     Dosage: 50MG PER DAY
     Route: 048
     Dates: start: 20131010
  2. PEPCID [Concomitant]
  3. PREDNISONE [Concomitant]
  4. ATENOLOL [Concomitant]

REACTIONS (3)
  - Dysuria [Unknown]
  - Urine abnormality [Unknown]
  - White blood cell count increased [Unknown]
